FAERS Safety Report 24302848 (Version 1)
Quarter: 2024Q3

REPORT INFORMATION
  Report Type: Spontaneous
  Country: IT (occurrence: IT)
  Receive Date: 20240910
  Receipt Date: 20240910
  Transmission Date: 20241017
  Serious: Yes (Death)
  Sender: RANBAXY
  Company Number: IT-SUN PHARMACEUTICAL INDUSTRIES LTD-2024RR-466882

PATIENT
  Age: 76 Year
  Sex: Female
  Weight: 45 kg

DRUGS (3)
  1. OXALIPLATIN [Suspect]
     Active Substance: OXALIPLATIN
     Indication: Oesophageal cancer metastatic
     Dosage: OXALIPLATIN 50 MG/M2 GG1-8
     Route: 065
     Dates: start: 20240508, end: 20240516
  2. FLUOROURACIL [Suspect]
     Active Substance: FLUOROURACIL
     Indication: Product used for unknown indication
     Dosage: 250 MG/M2 DAY1-8 ASSOCIATED WITH LEDERFOLIN 500 MG/M2 DAY1-8 G 1 REDUCED 50% G8 REDUCED 20%
     Route: 040
     Dates: start: 20240508, end: 20240516
  3. OPDIVO [Suspect]
     Active Substance: NIVOLUMAB
     Indication: Oesophageal cancer metastatic
     Dosage: 240 MG EVERY 14 DAYS, PERFORMED ONLY ONCE
     Route: 040
     Dates: start: 20240508, end: 20240508

REACTIONS (1)
  - Haematemesis [Fatal]

NARRATIVE: CASE EVENT DATE: 20240602
